FAERS Safety Report 4869444-8 (Version None)
Quarter: 2005Q4

REPORT INFORMATION
  Report Type: 
  Country: None (occurrence: None)
  Receive Date: 20051230
  Receipt Date: 20050609
  Transmission Date: 20060501
  Serious: Yes (Hospitalization, Disabling)
  Sender: FDA-Public Use
  Company Number: US-MERCK-0506USA01572

PATIENT
  Age: 50 Year
  Sex: Female
  Weight: 90 kg

DRUGS (4)
  1. VIOXX [Suspect]
     Indication: DYSMENORRHOEA
     Route: 048
     Dates: start: 20010501, end: 20010601
  2. VIOXX [Suspect]
     Route: 048
     Dates: start: 20020601, end: 20020901
  3. VIOXX [Suspect]
     Indication: ARTHRALGIA
     Route: 048
     Dates: start: 20010501, end: 20010601
  4. VIOXX [Suspect]
     Route: 048
     Dates: start: 20020601, end: 20020901

REACTIONS (20)
  - ANTINUCLEAR ANTIBODY POSITIVE [None]
  - ARTHROPATHY [None]
  - ASPARTATE AMINOTRANSFERASE INCREASED [None]
  - CARDIAC DISORDER [None]
  - CEREBROVASCULAR ACCIDENT [None]
  - CHEST PAIN [None]
  - CONNECTIVE TISSUE DISORDER [None]
  - CORONARY ARTERY DISEASE [None]
  - DEPRESSED LEVEL OF CONSCIOUSNESS [None]
  - GASTROINTESTINAL DISORDER [None]
  - HEADACHE [None]
  - HYPERTENSION [None]
  - ISCHAEMIA [None]
  - LUPUS VASCULITIS [None]
  - MYOCARDIAL INFARCTION [None]
  - PAIN MANAGEMENT [None]
  - PHLEBITIS [None]
  - PULMONARY EMBOLISM [None]
  - TACHYCARDIA [None]
  - UTERINE DISORDER [None]
